FAERS Safety Report 6738444-5 (Version None)
Quarter: 2010Q2

REPORT INFORMATION
  Report Type: 
  Country: None (occurrence: None)
  Receive Date: 20100524
  Receipt Date: 20100520
  Transmission Date: 20101027
  Serious: Yes (Death, Hospitalization)
  Sender: FDA-Public Use
  Company Number: MX-ELI_LILLY_AND_COMPANY-MX201005005512

PATIENT
  Age: 47 Year
  Sex: Female

DRUGS (2)
  1. GEMZAR [Suspect]
     Indication: LUNG NEOPLASM MALIGNANT
     Dosage: 1200 MG, OTHER
     Route: 042
     Dates: start: 20100429
  2. CARBOPLATIN [Concomitant]
     Indication: LUNG NEOPLASM MALIGNANT
     Dosage: 450 MG, OTHER
     Route: 065
     Dates: start: 20100429

REACTIONS (2)
  - ABDOMINAL SEPSIS [None]
  - HAEMATOTOXICITY [None]
